FAERS Safety Report 7202076-5 (Version None)
Quarter: 2010Q4

REPORT INFORMATION
  Report Type: 
  Country: None (occurrence: None)
  Receive Date: 20101229
  Receipt Date: 20101217
  Transmission Date: 20110411
  Serious: Yes (Other)
  Sender: FDA-Public Use
  Company Number: US-WATSON-2010-16266

PATIENT
  Age: 58 Year
  Sex: Male

DRUGS (5)
  1. DILTIA XT (WATSON LABORATORIES) [Suspect]
     Indication: BRADYCARDIA
     Dosage: 240 MG, DAILY
  2. SULFAMETHOXAZOLE AND TRIMETHOPRIM [Suspect]
     Indication: PRODUCT USED FOR UNKNOWN INDICATION
     Dosage: UNK
  3. FLUOXETINE [Suspect]
     Indication: PRODUCT USED FOR UNKNOWN INDICATION
     Dosage: UNK
  4. FLECAINIDE [Suspect]
     Indication: BRADYCARDIA
     Dosage: 100 MG, BID
  5. AZITHROMYCIN [Suspect]
     Indication: PRODUCT USED FOR UNKNOWN INDICATION
     Dosage: UNK

REACTIONS (4)
  - ATRIAL CONDUCTION TIME PROLONGATION [None]
  - ATRIOVENTRICULAR BLOCK FIRST DEGREE [None]
  - DRUG INTERACTION [None]
  - ELECTROCARDIOGRAM QT PROLONGED [None]
